FAERS Safety Report 13603815 (Version 1)
Quarter: 2017Q2

REPORT INFORMATION
  Report Type: Spontaneous
  Country: BR (occurrence: BR)
  Receive Date: 20170602
  Receipt Date: 20170602
  Transmission Date: 20170830
  Serious: Yes (Other)
  Sender: FDA-Public Use
  Company Number: BR-ROCHE-1942455

PATIENT
  Age: 38 Year
  Sex: Female

DRUGS (3)
  1. MABTHERA [Suspect]
     Active Substance: RITUXIMAB
     Indication: RHEUMATOID ARTHRITIS
  2. CELLCEPT [Suspect]
     Active Substance: MYCOPHENOLATE MOFETIL\MYCOPHENOLATE MOFETIL HYDROCHLORIDE
     Indication: LUPUS NEPHRITIS
     Route: 065
  3. MABTHERA [Suspect]
     Active Substance: RITUXIMAB
     Indication: LUPUS NEPHRITIS
     Route: 042

REACTIONS (5)
  - Hypersensitivity [Unknown]
  - Off label use [Unknown]
  - Staphylococcal infection [Recovered/Resolved]
  - Pleural effusion [Recovered/Resolved]
  - Spleen disorder [Unknown]
